FAERS Safety Report 5261592-6 (Version None)
Quarter: 2007Q1

REPORT INFORMATION
  Report Type: 
  Country: None (occurrence: None)
  Receive Date: 20061218
  Receipt Date: 20060817
  Transmission Date: 20070707
  Serious: No
  Sender: FDA-Public Use
  Company Number: US200608003906

PATIENT
  Sex: Male

DRUGS (1)
  1. CIALIS [Suspect]
     Dosage: 20 MG, AS NEEDED
     Dates: start: 20050801

REACTIONS (3)
  - POOR QUALITY SLEEP [None]
  - STRESS [None]
  - THERAPEUTIC RESPONSE DECREASED [None]
